FAERS Safety Report 13688024 (Version 1)
Quarter: 2017Q2

REPORT INFORMATION
  Report Type: Spontaneous
  Country: US (occurrence: US)
  Receive Date: 20170626
  Receipt Date: 20170626
  Transmission Date: 20170830
  Serious: No
  Sender: FDA-Public Use
  Company Number: US-009507513-1706USA007287

PATIENT
  Age: 18 Year
  Sex: Female
  Weight: 62.59 kg

DRUGS (1)
  1. NEXPLANON [Suspect]
     Active Substance: ETONOGESTREL
     Indication: CONTRACEPTION
     Dosage: 1 IMPLANT, UNK
     Route: 059
     Dates: start: 20170505

REACTIONS (2)
  - Vulvovaginal dryness [Not Recovered/Not Resolved]
  - Dyspareunia [Not Recovered/Not Resolved]

NARRATIVE: CASE EVENT DATE: 2017
